FAERS Safety Report 4553128-X (Version None)
Quarter: 2005Q1

REPORT INFORMATION
  Report Type: 
  Country: None (occurrence: None)
  Receive Date: 20050114
  Receipt Date: 20050104
  Transmission Date: 20050727
  Serious: Yes (Hospitalization, Other)
  Sender: FDA-Public Use
  Company Number: GB-JNJFOC-20041202830

PATIENT
  Sex: Male

DRUGS (2)
  1. RISPERDAL CONSTA [Suspect]
     Indication: BIPOLAR DISORDER
     Route: 030
  2. RISPERIDONE [Concomitant]
     Dosage: 1 MG IN MORNING, 3 MG AT NIGHT
     Route: 049

REACTIONS (1)
  - STEVENS-JOHNSON SYNDROME [None]
